FAERS Safety Report 4280339-3 (Version None)
Quarter: 2004Q1

REPORT INFORMATION
  Report Type: 
  Country: None (occurrence: None)
  Receive Date: 20040126
  Receipt Date: 20040112
  Transmission Date: 20041129
  Serious: Yes (Other)
  Sender: FDA-Public Use
  Company Number: 2003-UK-00522UK

PATIENT
  Age: 43 Year
  Sex: Male

DRUGS (8)
  1. NEVIRAPINE  (EU/1/97/055/002) [Suspect]
     Indication: HIV INFECTION
     Dosage: SEE IMAGE
     Route: 048
     Dates: start: 19980101
  2. COMBIVIR [Suspect]
     Dosage: 450 MG TWICE DAILY, PO
     Route: 048
     Dates: start: 20000201
  3. IBUPROFEN [Suspect]
     Dosage: 300 MG
  4. CANNABIS (CANNABIS) [Suspect]
  5. VIOXX [Concomitant]
  6. SALBUTAMOL (SALBUTAMOL) [Concomitant]
  7. SERETIDE [Concomitant]
  8. ANTIDEPRESSANT [Concomitant]

REACTIONS (1)
  - OPTIC NEUROPATHY [None]
